FAERS Safety Report 15561044 (Version 1)
Quarter: 2018Q4

REPORT INFORMATION
  Report Type: Spontaneous
  Country: US (occurrence: US)
  Receive Date: 20181029
  Receipt Date: 20181029
  Transmission Date: 20190205
  Serious: No
  Sender: FDA-Public Use
  Company Number: US-PFIZER INC-2018239706

PATIENT
  Age: 75 Year
  Sex: Female

DRUGS (2)
  1. LYRICA [Suspect]
     Active Substance: PREGABALIN
     Indication: LUMBAR RADICULOPATHY
  2. LYRICA [Suspect]
     Active Substance: PREGABALIN
     Indication: LUMBAR SPINAL STENOSIS
     Dosage: 100 MG, 2X/DAY (TAKE 1 CAPSULE BY MOUTH 2 TIMES DAILY, QTY : 180(ONE HUNDRED EIGHTY) CAPSULE)
     Route: 048
     Dates: start: 20180713

REACTIONS (1)
  - Pain [Unknown]

NARRATIVE: CASE EVENT DATE: 2018
